FAERS Safety Report 4277024-0 (Version None)
Quarter: 2004Q1

REPORT INFORMATION
  Report Type: 
  Country: None (occurrence: None)
  Receive Date: 20040120
  Receipt Date: 20040112
  Transmission Date: 20041129
  Serious: Yes (Hospitalization)
  Sender: FDA-Public Use
  Company Number: 22772

PATIENT
  Age: 80 Year
  Sex: Male

DRUGS (5)
  1. FLECAINE (ORAL) (FLECAINIDE ACETATE) [Suspect]
     Indication: ARRHYTHMIA SUPRAVENTRICULAR
     Dosage: ORAL
     Route: 048
     Dates: end: 20031201
  2. NEO-MERCAZOLE TAB [Suspect]
     Indication: HYPERTHYROIDISM
     Dosage: ORAL
     Route: 048
     Dates: start: 20030925, end: 20031127
  3. VIVALAN (VILOXAZINE HYDROCHLORIDE) [Suspect]
     Dosage: ORAL
     Route: 048
     Dates: end: 20031201
  4. PLAVIX [Suspect]
     Dosage: ORAL
     Route: 048
     Dates: end: 20031201
  5. ALDALIX (SPIRONOLACTONE, FRUSEMIDE) [Suspect]
     Dosage: ORAL
     Route: 048
     Dates: end: 20031201

REACTIONS (7)
  - BLOOD ALKALINE PHOSPHATASE INCREASED [None]
  - GAMMA-GLUTAMYLTRANSFERASE INCREASED [None]
  - GENERAL PHYSICAL HEALTH DETERIORATION [None]
  - HYPERKALAEMIA [None]
  - HYPERTHYROIDISM [None]
  - HYPONATRAEMIA [None]
  - WEIGHT DECREASED [None]
